FAERS Safety Report 6728839-8 (Version None)
Quarter: 2010Q2

REPORT INFORMATION
  Report Type: 
  Country: None (occurrence: None)
  Receive Date: 20100517
  Receipt Date: 20100219
  Transmission Date: 20101027
  Serious: No
  Sender: FDA-Public Use
  Company Number: US-ABBOTT-10P-163-0628538-00

PATIENT
  Sex: Male
  Weight: 76.726 kg

DRUGS (4)
  1. SIMCOR [Suspect]
     Indication: HIGH DENSITY LIPOPROTEIN DECREASED
     Dates: start: 20100206
  2. PLAVIX [Concomitant]
     Indication: CORONARY ARTERIAL STENT INSERTION
  3. TOPROL-XL [Concomitant]
     Indication: HYPERTENSION
  4. ACCUPRIL [Concomitant]
     Indication: HYPERTENSION

REACTIONS (2)
  - FLUSHING [None]
  - PRURITUS [None]
